FAERS Safety Report 12570265 (Version 2)
Quarter: 2016Q3

REPORT INFORMATION
  Report Type: Report from Study
  Country: JP (occurrence: JP)
  Receive Date: 20160719
  Receipt Date: 20160922
  Transmission Date: 20161109
  Serious: Yes (Hospitalization, Other)
  Sender: FDA-Public Use
  Company Number: JP-JNJFOC-20160413694

PATIENT
  Age: 53 Year
  Sex: Male

DRUGS (3)
  1. YONDELIS [Suspect]
     Active Substance: TRABECTEDIN
     Indication: MYXOFIBROSARCOMA
     Dosage: CYCLE 1 (24-HOUR INFUSION)
     Route: 041
     Dates: start: 20160118
  2. YONDELIS [Suspect]
     Active Substance: TRABECTEDIN
     Indication: MYXOFIBROSARCOMA
     Dosage: CYCLE 1 (24-HOUR INFUSION)
     Route: 041
     Dates: start: 20160208
  3. YONDELIS [Suspect]
     Active Substance: TRABECTEDIN
     Indication: MYXOFIBROSARCOMA
     Dosage: CYCLE 1 (24-HOUR INFUSION)
     Route: 041
     Dates: start: 20160307

REACTIONS (5)
  - Device related infection [Unknown]
  - Implant site extravasation [Recovered/Resolved]
  - Rhabdomyolysis [Recovering/Resolving]
  - Infusion site reaction [Unknown]
  - Fatigue [Recovering/Resolving]

NARRATIVE: CASE EVENT DATE: 201601
